FAERS Safety Report 6453099-5 (Version None)
Quarter: 2009Q4

REPORT INFORMATION
  Report Type: 
  Country: None (occurrence: None)
  Receive Date: 20091116
  Receipt Date: 20091103
  Transmission Date: 20100525
  Serious: Yes (Hospitalization)
  Sender: FDA-Public Use
  Company Number: ADR50162009

PATIENT
  Age: 8 Year
  Sex: Male

DRUGS (2)
  1. RISPERIDONE [Suspect]
     Indication: AGITATION
  2. RISPERIDONE [Suspect]
     Indication: SLEEP DISORDER

REACTIONS (6)
  - HEADACHE [None]
  - NAUSEA [None]
  - SINUS ARREST [None]
  - SINUS BRADYCARDIA [None]
  - SYNCOPE [None]
  - VOMITING [None]
